FAERS Safety Report 19777059 (Version 3)
Quarter: 2021Q3

REPORT INFORMATION
  Report Type: Spontaneous
  Country: GB (occurrence: GB)
  Receive Date: 20210902
  Receipt Date: 20210918
  Transmission Date: 20211014
  Serious: Yes (Hospitalization, Disabling, Other)
  Sender: FDA-Public Use
  Company Number: GB-ADVANZ PHARMA-202108005829

PATIENT

DRUGS (8)
  1. BETNOVATE [Suspect]
     Active Substance: BETAMETHASONE
     Indication: ECZEMA
     Dosage: UNK
     Route: 061
     Dates: start: 19770901, end: 20180605
  2. FUCIDIN [Suspect]
     Active Substance: FUSIDATE SODIUM
     Indication: ECZEMA
     Dosage: UNK
     Route: 061
     Dates: start: 19770901, end: 20180605
  3. ALPHADERM [Suspect]
     Active Substance: HYDROCORTISONE\UREA
     Indication: ECZEMA
     Dosage: UNK
     Route: 061
     Dates: start: 19770901, end: 20180605
  4. DUPIXENT [Concomitant]
     Active Substance: DUPILUMAB
     Dosage: UNK
  5. PREDNISOLONE. [Suspect]
     Active Substance: PREDNISOLONE
     Indication: ECZEMA
     Dosage: UNK
     Route: 061
     Dates: start: 19770901, end: 20180605
  6. EUMOVATE [Suspect]
     Active Substance: CLOBETASONE BUTYRATE
     Indication: ECZEMA
     Dosage: UNK
     Route: 061
     Dates: start: 19770901, end: 20180605
  7. MOMETASONE FUROATE. [Suspect]
     Active Substance: MOMETASONE FUROATE
     Indication: ECZEMA
     Dosage: UNK
     Route: 061
     Dates: start: 19770901, end: 20180605
  8. CICLOSPORIN [Concomitant]
     Active Substance: CYCLOSPORINE
     Dosage: UNK

REACTIONS (10)
  - Erythema [Recovered/Resolved with Sequelae]
  - Skin burning sensation [Recovered/Resolved with Sequelae]
  - Skin exfoliation [Recovered/Resolved with Sequelae]
  - Pruritus [Recovered/Resolved with Sequelae]
  - Medication error [Unknown]
  - Neuralgia [Recovered/Resolved with Sequelae]
  - Skin weeping [Recovered/Resolved with Sequelae]
  - Oedema [Recovered/Resolved with Sequelae]
  - Insomnia [Recovered/Resolved with Sequelae]
  - Temperature intolerance [Unknown]

NARRATIVE: CASE EVENT DATE: 20100101
